FAERS Safety Report 7980296-X (Version None)
Quarter: 2011Q4

REPORT INFORMATION
  Report Type: 
  Country: None (occurrence: None)
  Receive Date: 20111214
  Receipt Date: 20111205
  Transmission Date: 20120403
  Serious: Yes (Hospitalization)
  Sender: FDA-Public Use
  Company Number: FR-ASTRAZENECA-2011SE51603

PATIENT
  Age: 15 Year
  Sex: Female

DRUGS (9)
  1. MYCOPHENOLATE MOFETIL [Suspect]
     Indication: GRAFT VERSUS HOST DISEASE
     Route: 048
  2. PHENOXYMETHYL PENICILLIN [Concomitant]
  3. NICARDIPINE HCL [Concomitant]
  4. FOSCARNET [Suspect]
     Indication: CYTOMEGALOVIRUS INFECTION
     Route: 042
  5. OMEPRAZOLE [Concomitant]
  6. DEFEROXAMINE MESYLATE [Concomitant]
  7. PREDNISOLONE SODIUM SULFATE [Concomitant]
  8. COTRIM [Concomitant]
  9. VORICONAZOLE [Concomitant]

REACTIONS (1)
  - OESOPHAGITIS ULCERATIVE [None]
